FAERS Safety Report 17829971 (Version 1)
Quarter: 2020Q2

REPORT INFORMATION
  Report Type: Spontaneous
  Country: CA (occurrence: CA)
  Receive Date: 20200527
  Receipt Date: 20200527
  Transmission Date: 20200714
  Serious: Yes (Other)
  Sender: FDA-Public Use
  Company Number: CA-TEVA-2020-CA-1240229

PATIENT
  Age: 21 Year
  Sex: Male

DRUGS (8)
  1. MIDAZOLAM. [Suspect]
     Active Substance: MIDAZOLAM
     Indication: PROPHYLAXIS
     Route: 030
  2. PHENOBARBITAL. [Concomitant]
     Active Substance: PHENOBARBITAL
  3. VALPROIC ACID. [Concomitant]
     Active Substance: VALPROIC ACID
  4. LEVETIRACETAM. [Concomitant]
     Active Substance: LEVETIRACETAM
  5. PHENYTOIN. [Concomitant]
     Active Substance: PHENYTOIN
  6. PROPOFOL. [Suspect]
     Active Substance: PROPOFOL
     Indication: PROPHYLAXIS
     Route: 065
  7. ISOFLURANE. [Concomitant]
     Active Substance: ISOFLURANE
  8. VIMPAT [Concomitant]
     Active Substance: LACOSAMIDE

REACTIONS (2)
  - Intestinal ischaemia [Not Recovered/Not Resolved]
  - Clostridium difficile infection [Not Recovered/Not Resolved]
